FAERS Safety Report 9886742 (Version 2)
Quarter: 2014Q1

REPORT INFORMATION
  Report Type: Spontaneous
  Country: FI (occurrence: FI)
  Receive Date: 20140210
  Receipt Date: 20140210
  Transmission Date: 20141002
  Serious: Yes (Hospitalization)
  Sender: FDA-Public Use
  Company Number: PHHY2014FI006145

PATIENT
  Sex: Female

DRUGS (4)
  1. GILENYA [Suspect]
     Indication: MULTIPLE SCLEROSIS
     Dosage: 0.5 MG, QD
     Route: 048
  2. ASACOL [Concomitant]
     Dosage: 1 DF, PRN
  3. BACLOFEN [Concomitant]
     Dosage: 10 MG, UNK
  4. PANADOL FORTE [Concomitant]

REACTIONS (3)
  - Malaise [Recovered/Resolved]
  - Heart rate decreased [Unknown]
  - Atrioventricular block first degree [Recovered/Resolved]
